FAERS Safety Report 7798141-4 (Version None)
Quarter: 2011Q4

REPORT INFORMATION
  Report Type: 
  Country: None (occurrence: None)
  Receive Date: 20111005
  Receipt Date: 20110930
  Transmission Date: 20120403
  Serious: No
  Sender: FDA-Public Use
  Company Number: US-BAYER-2011-094463

PATIENT
  Age: 8 Year
  Sex: Female

DRUGS (2)
  1. GADAVIST [Suspect]
     Indication: ANGIOGRAM
  2. GADAVIST [Suspect]
     Indication: NUCLEAR MAGNETIC RESONANCE IMAGING BRAIN
     Dosage: 5 ML, ONCE
     Route: 042
     Dates: start: 20110929, end: 20110929

REACTIONS (1)
  - VOMITING PROJECTILE [None]
